FAERS Safety Report 22592636 (Version 13)
Quarter: 2024Q3

REPORT INFORMATION
  Report Type: Spontaneous
  Country: CA (occurrence: CA)
  Receive Date: 20230613
  Receipt Date: 20240928
  Transmission Date: 20241016
  Serious: Yes (Other)
  Sender: CELLTRION
  Company Number: CA-CELLTRION INC.-2022CA019775

PATIENT

DRUGS (32)
  1. INFLECTRA [Suspect]
     Active Substance: INFLIXIMAB-DYYB
     Indication: Crohn^s disease
     Dosage: 5 MG/KG, INDUCTION WEEKS 0, 2, 6 THEN EVERY 8 WEEKS
     Route: 042
     Dates: start: 20221116
  2. INFLECTRA [Suspect]
     Active Substance: INFLIXIMAB-DYYB
     Indication: Ankylosing spondylitis
     Dosage: 5 MG/KG, INDUCTION WEEKS 0, 2, 6 THEN EVERY 8 WEEKS
     Route: 042
     Dates: start: 20221201
  3. INFLECTRA [Suspect]
     Active Substance: INFLIXIMAB-DYYB
     Dosage: 5 MG/KG, INDUCTION WEEKS 0, 2, 6 THEN EVERY 8 WEEKS
     Route: 042
     Dates: start: 20221229
  4. INFLECTRA [Suspect]
     Active Substance: INFLIXIMAB-DYYB
     Dosage: 5MG/KG (560 MG), MAINTENANCE EVERY 8 WEEKS (INDUCTION WEEKS 0, 2, 6 THEN EVERY 8 WEEKS)
     Route: 042
     Dates: start: 20230223
  5. INFLECTRA [Suspect]
     Active Substance: INFLIXIMAB-DYYB
     Dosage: 10 MG/KG, EVERY 8 WEEKS
     Route: 042
     Dates: start: 20230420
  6. INFLECTRA [Suspect]
     Active Substance: INFLIXIMAB-DYYB
     Dosage: 10 MG/KG, AFTER 9 WEEKS AND 6 DAYS (PRESCRIBED IS EVERY 8 WEEKS)
     Route: 042
     Dates: start: 20230628
  7. INFLECTRA [Suspect]
     Active Substance: INFLIXIMAB-DYYB
     Dosage: 10 MG/KG, EVERY 8 WEEKS
     Route: 042
     Dates: start: 20230823
  8. INFLECTRA [Suspect]
     Active Substance: INFLIXIMAB-DYYB
     Dosage: 10 MG/KG, EVERY 8 WEEKS
     Route: 042
     Dates: start: 20230823
  9. INFLECTRA [Suspect]
     Active Substance: INFLIXIMAB-DYYB
     Dosage: 10 MG/KG (1140 MG), AFTER 10 WEEKS (PRESCRIBED EVERY 8 WEEKS)
     Route: 042
     Dates: start: 20231101
  10. INFLECTRA [Suspect]
     Active Substance: INFLIXIMAB-DYYB
     Dosage: 10 MG/KG (1140 MG), AFTER 10 WEEKS (PRESCRIBED EVERY 8 WEEKS)
     Route: 042
     Dates: start: 20231101
  11. INFLECTRA [Suspect]
     Active Substance: INFLIXIMAB-DYYB
     Dosage: 10 MG/KG (1160 MG), EVERY 8 WEEKS
     Route: 042
     Dates: start: 20231229
  12. INFLECTRA [Suspect]
     Active Substance: INFLIXIMAB-DYYB
     Dosage: 10 MG/KG (1200MG), EVERY 4 WEEKS
     Route: 042
     Dates: start: 20240205
  13. INFLECTRA [Suspect]
     Active Substance: INFLIXIMAB-DYYB
     Dosage: 10 MG/KG (1140 MG), AFTER 4 WEEKS AND 1 DAY (PRESCRIBED EVERY 4 WEEKS)
     Route: 042
     Dates: start: 20240305
  14. INFLECTRA [Suspect]
     Active Substance: INFLIXIMAB-DYYB
     Dosage: 10 MG/KG (1160MG), AFTER 4 WEEKS AND 1 DAY (PRESCRIBED EVERY 4 WEEKS)
     Route: 042
     Dates: start: 20240403
  15. INFLECTRA [Suspect]
     Active Substance: INFLIXIMAB-DYYB
     Dosage: 10 MG/KG (1160MG), AFTER 4 WEEKS AND 1 DAY (PRESCRIBED EVERY 4 WEEKS)
     Route: 042
     Dates: start: 20240501
  16. INFLECTRA [Suspect]
     Active Substance: INFLIXIMAB-DYYB
     Dosage: 10 MG/KG (1160MG), AFTER 4 WEEKS AND 1 DAY (PRESCRIBED EVERY 4 WEEKS)
     Route: 042
     Dates: start: 20240501
  17. INFLECTRA [Suspect]
     Active Substance: INFLIXIMAB-DYYB
     Dosage: 10 MG/KG (1180 MG), EVERY 4 WEEKS
     Route: 042
     Dates: start: 20240529
  18. INFLECTRA [Suspect]
     Active Substance: INFLIXIMAB-DYYB
     Dosage: 1150 MG (10 MG/ KG), EVERY 4 WEEKS
     Route: 042
     Dates: start: 20240626
  19. INFLECTRA [Suspect]
     Active Substance: INFLIXIMAB-DYYB
     Dosage: 1150 MG (10 MG/ KG), EVERY 4 WEEKS
     Route: 042
     Dates: start: 20240626
  20. INFLECTRA [Suspect]
     Active Substance: INFLIXIMAB-DYYB
     Dosage: 1150 MG (10 MG/ KG), EVERY 4 WEEKS
     Route: 042
     Dates: start: 20240626
  21. INFLECTRA [Suspect]
     Active Substance: INFLIXIMAB-DYYB
     Dosage: 1150 MG (10 MG/ KG), EVERY 4 WEEKS
     Route: 042
     Dates: start: 20240626
  22. INFLECTRA [Suspect]
     Active Substance: INFLIXIMAB-DYYB
     Dosage: 1190MG (10MG/KG), EVERY 4 WEEKS
     Route: 042
     Dates: start: 20240723
  23. INFLECTRA [Suspect]
     Active Substance: INFLIXIMAB-DYYB
     Dosage: 1160 MG (10 MG/KG), EVERY 4 WEEKS
     Route: 042
     Dates: start: 20240821
  24. INFLECTRA [Suspect]
     Active Substance: INFLIXIMAB-DYYB
     Dosage: 1160 MG (10 MG/KG), EVERY 4 WEEKS
     Route: 042
     Dates: start: 20240821
  25. INFLECTRA [Suspect]
     Active Substance: INFLIXIMAB-DYYB
     Dosage: 1160 MG, (10MG/KG), EVERY 4 WEEKS
     Route: 042
     Dates: start: 20240918
  26. CIMZIA [Concomitant]
     Active Substance: CERTOLIZUMAB PEGOL
     Dosage: 1 DF
     Dates: start: 202109
  27. CARDIZEM [Concomitant]
     Active Substance: DILTIAZEM HYDROCHLORIDE
     Dosage: UNK
  28. CARDIZEM [Concomitant]
     Active Substance: DILTIAZEM HYDROCHLORIDE
     Dosage: 240 MG, 1X/DAY
     Route: 048
  29. FOLIC ACID [Concomitant]
     Active Substance: FOLIC ACID
     Dosage: 1 DF
     Route: 065
  30. METHOTREXATE [Concomitant]
     Active Substance: METHOTREXATE
     Indication: Ankylosing spondylitis
     Dosage: 1 DF (DOSAGE UNKNOWN)
     Route: 065
  31. METHOTREXATE [Concomitant]
     Active Substance: METHOTREXATE
     Dosage: 15 MG, WEEKLY
     Route: 058
  32. NAPROSYN [Concomitant]
     Active Substance: NAPROXEN
     Dosage: 1 DF
     Route: 065

REACTIONS (12)
  - Arthritis bacterial [Not Recovered/Not Resolved]
  - Arthritis infective [Recovering/Resolving]
  - Condition aggravated [Not Recovered/Not Resolved]
  - Drug level decreased [Unknown]
  - Therapeutic response shortened [Unknown]
  - Anal fissure [Recovered/Resolved]
  - Aphthous ulcer [Recovered/Resolved]
  - Arthralgia [Recovered/Resolved]
  - Fistula [Recovered/Resolved]
  - Off label use [Unknown]
  - Off label use [Unknown]
  - Intentional product use issue [Unknown]

NARRATIVE: CASE EVENT DATE: 20221116
